FAERS Safety Report 23296568 (Version 1)
Quarter: 2023Q4

REPORT INFORMATION
  Report Type: Spontaneous
  Country: US (occurrence: None)
  Receive Date: 20231214
  Receipt Date: 20231214
  Transmission Date: 20240109
  Serious: Yes (Hospitalization)
  Sender: FDA-Public Use
  Company Number: None

PATIENT
  Age: 65 Year
  Sex: Male
  Weight: 62.9 kg

DRUGS (2)
  1. CARBOPLATIN [Suspect]
     Active Substance: CARBOPLATIN
     Dates: end: 20220914
  2. TAXOL [Suspect]
     Active Substance: PACLITAXEL
     Dates: end: 20220914

REACTIONS (7)
  - Pleurisy [None]
  - Condition aggravated [None]
  - Pain [None]
  - Leukocytosis [None]
  - Tachycardia [None]
  - Pneumonia [None]
  - Peripheral sensory neuropathy [None]

NARRATIVE: CASE EVENT DATE: 20230929
